FAERS Safety Report 10170802 (Version 1)
Quarter: 2014Q2

REPORT INFORMATION
  Report Type: Spontaneous
  Country: US (occurrence: US)
  Receive Date: 20140514
  Receipt Date: 20140514
  Transmission Date: 20141212
  Serious: Yes (Other)
  Sender: FDA-Public Use
  Company Number: US-PFIZER INC-2014128873

PATIENT
  Age: 31 Year
  Sex: Male
  Weight: 105.22 kg

DRUGS (8)
  1. LYRICA [Suspect]
     Indication: SPINAL PAIN
     Dosage: 100 MG, 3X/DAY
     Route: 048
     Dates: start: 2011
  2. LYRICA [Suspect]
     Indication: NEURALGIA
     Dosage: 100 MG, 3X/DAY
     Route: 048
     Dates: start: 201404
  3. LYRICA [Suspect]
     Indication: SPINAL CORD INJURY
  4. LYRICA [Suspect]
     Indication: BACK INJURY
  5. NORCO [Concomitant]
     Indication: PAIN
     Dosage: 5/325 MG, 2X/DAY
     Route: 048
  6. FLEXERIL [Concomitant]
     Indication: MUSCLE SPASMS
     Dosage: 5 MG, 2X/DAY
     Route: 048
  7. PROZAC [Concomitant]
     Indication: DEPRESSION
     Dosage: 10 MG, 1X/DAY
     Route: 048
  8. ATIVAN [Concomitant]
     Indication: ANXIETY
     Dosage: 1 MG, 4X/DAY
     Route: 060

REACTIONS (1)
  - Nuclear magnetic resonance imaging abnormal [Unknown]
